FAERS Safety Report 5723165-8 (Version None)
Quarter: 2008Q2

REPORT INFORMATION
  Report Type: 
  Country: None (occurrence: None)
  Receive Date: 20080430
  Receipt Date: 20080419
  Transmission Date: 20081010
  Serious: Yes (Other)
  Sender: FDA-Public Use
  Company Number: US-ELI_LILLY_AND_COMPANY-US200706001293

PATIENT
  Age: 76 Year
  Sex: Male

DRUGS (4)
  1. CIALIS [Suspect]
     Indication: ERECTILE DYSFUNCTION
     Dosage: 20 MG, UNK
     Dates: start: 20060101
  2. CIALIS [Suspect]
     Dates: start: 20061101
  3. CIALIS [Suspect]
     Dosage: 20 MG, UNK
     Dates: start: 20060101
  4. CIALIS [Suspect]
     Dates: start: 20030101

REACTIONS (5)
  - CARDIAC DISORDER [None]
  - COLON CANCER [None]
  - DRUG INEFFECTIVE [None]
  - LUNG NEOPLASM MALIGNANT [None]
  - METASTASIS [None]
